FAERS Safety Report 25736443 (Version 5)
Quarter: 2025Q4

REPORT INFORMATION
  Report Type: Report from Study
  Country: CN (occurrence: CN)
  Receive Date: 20250828
  Receipt Date: 20251229
  Transmission Date: 20260119
  Serious: Yes (Hospitalization, Other)
  Sender: ABBVIE
  Company Number: CN-ABBVIE-6244950

PATIENT
  Age: 73 Year
  Sex: Female
  Weight: 74 kg

DRUGS (31)
  1. OZURDEX [Suspect]
     Active Substance: DEXAMETHASONE
     Indication: Diabetic retinal oedema
     Dosage: TIME INTERVAL: AS NECESSARY: 700 MICROGRAM; FREQUENCY: ONCE; IN THE LEFT EYE
     Route: 050
     Dates: start: 20250120, end: 20250120
  2. OZURDEX [Suspect]
     Active Substance: DEXAMETHASONE
     Dosage: TIME INTERVAL: AS NECESSARY: 700 MICROGRAM; IN THE RIGHT EYE
     Route: 050
     Dates: start: 20250113, end: 20250113
  3. OZURDEX [Suspect]
     Active Substance: DEXAMETHASONE
     Dosage: TIME INTERVAL: AS NECESSARY: 700 MICROGRAM; FREQUENCY: ONCE
     Route: 031
     Dates: start: 20240517, end: 20240517
  4. OZURDEX [Suspect]
     Active Substance: DEXAMETHASONE
     Dosage: TIME INTERVAL: AS NECESSARY: 700 MICROGRAM; FREQUENCY: ONCE; IN THE LEFT EYE
     Route: 065
     Dates: start: 20251204
  5. TOBRAMYCIN AND DEXAMETHASONE [Concomitant]
     Active Substance: DEXAMETHASONE\TOBRAMYCIN
     Indication: Prophylaxis
     Dosage: APPROPRIATE AMOUNT; FREQUENCY TEXT: ONCE
     Route: 047
     Dates: start: 20250120, end: 20250120
  6. TOBRAMYCIN AND DEXAMETHASONE [Concomitant]
     Active Substance: DEXAMETHASONE\TOBRAMYCIN
     Indication: Prophylaxis
     Dosage: APPROPRIATE AMOUNT?FREQUENCY: ONCE
     Route: 047
     Dates: start: 20250113, end: 20250113
  7. HERBALS [Concomitant]
     Active Substance: HERBALS
     Indication: Diabetic retinopathy
     Dosage: TIME INTERVAL: 0.33333333 DAYS: DRIPPING PILLS
     Route: 048
     Dates: start: 20250319
  8. INSULIN GLARGINE [Concomitant]
     Active Substance: INSULIN GLARGINE
     Indication: Type 2 diabetes mellitus
     Dosage: 12 IU (INTERNATIONAL UNIT)
     Route: 058
     Dates: start: 2018
  9. INSULIN GLARGINE [Concomitant]
     Active Substance: INSULIN GLARGINE
     Indication: Type 2 diabetes mellitus
     Route: 058
     Dates: start: 20250925
  10. RANITIDINE HYDROCHLORIDE [Concomitant]
     Active Substance: RANITIDINE HYDROCHLORIDE
     Indication: Prophylaxis
     Dates: start: 20250922, end: 20250928
  11. AFLIBERCEPT [Concomitant]
     Active Substance: AFLIBERCEPT
     Indication: Diabetic retinal oedema
     Dosage: FREQUENCY TEXT: ONCE
     Route: 031
     Dates: start: 20250623, end: 20250623
  12. AFLIBERCEPT [Concomitant]
     Active Substance: AFLIBERCEPT
     Indication: Diabetic retinal oedema
     Dosage: FREQUENCY TEXT: ONCE
     Route: 031
     Dates: start: 20250519, end: 20250519
  13. LEVOFLOXACIN HYDROCHLORIDE [Concomitant]
     Active Substance: LEVOFLOXACIN HYDROCHLORIDE
     Indication: Prophylaxis
     Route: 047
     Dates: start: 20250121, end: 20250123
  14. LEVOFLOXACIN HYDROCHLORIDE [Concomitant]
     Active Substance: LEVOFLOXACIN HYDROCHLORIDE
     Indication: Prophylaxis
     Dosage: TIME INTERVAL: 0.16666667 DAYS
     Route: 047
     Dates: start: 20250120, end: 20250120
  15. LEVOFLOXACIN HYDROCHLORIDE [Concomitant]
     Active Substance: LEVOFLOXACIN HYDROCHLORIDE
     Indication: Prophylaxis
     Dosage: TIME INTERVAL: 0.16666667 DAYS
     Route: 047
     Dates: start: 20250113, end: 20250113
  16. LEVOFLOXACIN HYDROCHLORIDE [Concomitant]
     Active Substance: LEVOFLOXACIN HYDROCHLORIDE
     Indication: Prophylaxis
     Route: 047
     Dates: start: 20250114, end: 20250116
  17. PROPARACAINE HYDROCHLORIDE [Concomitant]
     Active Substance: PROPARACAINE HYDROCHLORIDE
     Indication: Local anaesthesia
     Dosage: FREQUENCY: ONCE?3 DROPS
     Route: 047
     Dates: start: 20250113, end: 20250113
  18. PROPARACAINE HYDROCHLORIDE [Concomitant]
     Active Substance: PROPARACAINE HYDROCHLORIDE
     Indication: Local anaesthesia
     Dosage: FREQUENCY: ONCE?3 DROP
     Route: 047
     Dates: start: 20250120, end: 20250120
  19. VALSARTAN [Concomitant]
     Active Substance: VALSARTAN
     Indication: Hypertension
     Dosage: 80 MILLIGRAM
     Route: 048
     Dates: start: 202410
  20. VALSARTAN [Concomitant]
     Active Substance: VALSARTAN
     Indication: Hypertension
     Dosage: 80 MILLIGRAM
     Route: 048
     Dates: start: 20250903
  21. LIDOCAINE HYDROCHLORIDE [Concomitant]
     Active Substance: LIDOCAINE HYDROCHLORIDE
     Indication: Local anaesthesia
     Dosage: FREQUENCY TEXT: ONCE
     Dates: start: 20250923, end: 20250923
  22. METFORMIN HYDROCHLORIDE [Concomitant]
     Active Substance: METFORMIN HYDROCHLORIDE
     Indication: Type 2 diabetes mellitus
     Dosage: 0.5 GRAM
     Route: 048
     Dates: start: 2018
  23. METFORMIN HYDROCHLORIDE [Concomitant]
     Active Substance: METFORMIN HYDROCHLORIDE
     Indication: Type 2 diabetes mellitus
     Dosage: TIME INTERVAL: 0.33333333 DAYS
     Route: 048
     Dates: start: 20250922, end: 20250928
  24. METFORMIN HYDROCHLORIDE [Concomitant]
     Active Substance: METFORMIN HYDROCHLORIDE
     Indication: Type 2 diabetes mellitus
     Dosage: AS NECESSARY
     Route: 048
     Dates: start: 202508
  25. HEPARIN [Concomitant]
     Active Substance: HEPARIN SODIUM
     Indication: Prophylaxis
     Dosage: FREQUENCY TEXT: ONCE
     Dates: start: 20250923, end: 20250923
  26. ENOXAPARIN SODIUM [Concomitant]
     Active Substance: ENOXAPARIN SODIUM
     Indication: Prophylaxis
     Dates: start: 20250923, end: 20250928
  27. CALCIUM CHLORIDE\POTASSIUM CHLORIDE\SODIUM CHLORIDE\SODIUM LACTATE [Concomitant]
     Active Substance: CALCIUM CHLORIDE\POTASSIUM CHLORIDE\SODIUM CHLORIDE\SODIUM LACTATE
     Indication: Fluid replacement
     Dosage: FREQUENCY TEXT: ONCE
     Dates: start: 20250923, end: 20250923
  28. MAGNESIUM SULFATE [Concomitant]
     Active Substance: MAGNESIUM SULFATE
     Indication: Vehicle solution use
     Dates: start: 20250922, end: 20250928
  29. POTASSIUM CHLORIDE [Concomitant]
     Active Substance: POTASSIUM CHLORIDE
     Indication: Vehicle solution use
     Dosage: 0.6 GRAM
     Dates: start: 20250922, end: 20250928
  30. ROSUVASTATIN CALCIUM [Concomitant]
     Active Substance: ROSUVASTATIN CALCIUM
     Indication: Hypertension
     Dosage: 5 MILLIGRAM
     Route: 048
     Dates: start: 202410
  31. METOPROLOL TARTRATE [Concomitant]
     Active Substance: METOPROLOL TARTRATE
     Indication: Oxygen consumption decreased
     Route: 048
     Dates: start: 20250922, end: 20250928

REACTIONS (13)
  - Acute myocardial infarction [Recovered/Resolved]
  - Intraocular pressure increased [Recovered/Resolved]
  - Vomiting [Recovered/Resolved]
  - Dry eye [Not Recovered/Not Resolved]
  - Anaemia [Not Recovered/Not Resolved]
  - Nausea [Recovered/Resolved]
  - Hyponatraemia [Recovered/Resolved]
  - Upper respiratory tract infection [Recovered/Resolved]
  - Uveitis [Not Recovered/Not Resolved]
  - Angina unstable [Recovered/Resolved]
  - Chest discomfort [Recovered/Resolved]
  - Upper respiratory tract infection [Recovered/Resolved]
  - Epiretinal membrane [Not Recovered/Not Resolved]

NARRATIVE: CASE EVENT DATE: 20250121
